FAERS Safety Report 7005574-2 (Version None)
Quarter: 2010Q3

REPORT INFORMATION
  Report Type: 
  Country: None (occurrence: None)
  Receive Date: 20100921
  Receipt Date: 20100913
  Transmission Date: 20110219
  Serious: Yes (Hospitalization)
  Sender: FDA-Public Use
  Company Number: A0839021A

PATIENT

DRUGS (1)
  1. WELLBUTRIN [Suspect]
     Indication: PRODUCT USED FOR UNKNOWN INDICATION
     Route: 048

REACTIONS (10)
  - ANAPHYLACTIC SHOCK [None]
  - BEDRIDDEN [None]
  - HYPERSENSITIVITY [None]
  - OEDEMA PERIPHERAL [None]
  - PAIN [None]
  - PERFORMANCE STATUS DECREASED [None]
  - PRURITUS [None]
  - RASH [None]
  - SLEEP DISORDER [None]
  - SWELLING FACE [None]
